FAERS Safety Report 6471537 (Version 26)
Quarter: 2013Q3

REPORT INFORMATION
  Report Type: Spontaneous
  Country: US (occurrence: US)
  Receive Date: 20071119
  Receipt Date: 20130726
  Transmission Date: 20140515
  Serious: Yes (Hospitalization, Congenital Anomaly, Other)
  Sender: FDA-Public Use
  Company Number: US-PFIZER INC-2007095308

PATIENT
  Sex: Male

DRUGS (12)
  1. ZOLOFT [Suspect]
     Dosage: UNK
     Route: 064
     Dates: start: 1999, end: 200205
  2. SERTRALINE HCL [Suspect]
     Dosage: UNK
     Route: 064
     Dates: start: 1999, end: 200205
  3. LORTAB [Concomitant]
     Dosage: UNK
     Route: 064
  4. PROZAC [Concomitant]
     Dosage: UNK
     Route: 064
  5. PAXIL [Concomitant]
     Dosage: UNK
     Route: 064
  6. SYNTHROID [Concomitant]
     Dosage: UNK
     Route: 064
  7. PEPCID [Concomitant]
     Dosage: UNK
     Route: 064
  8. PERCOCET [Concomitant]
     Dosage: UNK
     Route: 064
  9. LEVOTHYROXINE [Concomitant]
     Dosage: UNK
     Route: 064
  10. TUMS [Concomitant]
     Dosage: UNK
     Route: 064
  11. ADVIL [Concomitant]
     Dosage: UNK
     Route: 064
  12. XANAX [Concomitant]
     Dosage: UNK
     Route: 064

REACTIONS (27)
  - Foetal exposure during pregnancy [Unknown]
  - Pulmonary valve stenosis [Unknown]
  - Renal aplasia [Unknown]
  - Hypertension [Unknown]
  - Syncope [Unknown]
  - Headache [Not Recovered/Not Resolved]
  - Dizziness [Unknown]
  - Palpitations [Unknown]
  - Developmental delay [Unknown]
  - Arthropathy [Unknown]
  - Thalassaemia [Unknown]
  - Hydronephrosis [Unknown]
  - Urethral meatus stenosis [Unknown]
  - Atrial septal defect [Unknown]
  - Congenital anomaly [Unknown]
  - Complement factor C4 decreased [Recovered/Resolved]
  - Urinary tract infection [Unknown]
  - Sleep apnoea syndrome [Recovered/Resolved]
  - Myoclonic epilepsy [Unknown]
  - Atrial septal defect [Unknown]
  - Tonsillar hypertrophy [Unknown]
  - Cyanosis [Not Recovered/Not Resolved]
  - Dyspepsia [Unknown]
  - Ear infection [Unknown]
  - Premature baby [Unknown]
  - Sinusitis [Unknown]
  - Arrhythmia [Unknown]
